FAERS Safety Report 8212810-3 (Version None)
Quarter: 2012Q1

REPORT INFORMATION
  Report Type: 
  Country: None (occurrence: None)
  Receive Date: 20120315
  Receipt Date: 20120306
  Transmission Date: 20120608
  Serious: Yes (Hospitalization, Other)
  Sender: FDA-Public Use
  Company Number: US-CELGENEUS-163-21880-11101905

PATIENT
  Sex: Female

DRUGS (4)
  1. CHOLESTYRAMINE/SUCROSE [Concomitant]
     Indication: BILE ACID MALABSORPTION
     Dosage: 1 PACK
     Route: 048
  2. RANITIDINE [Concomitant]
     Dosage: 300 MILLIGRAM
     Route: 048
  3. REGLAN [Concomitant]
     Dosage: 5 MILLIGRAM
     Route: 048
  4. REVLIMID [Suspect]
     Dosage: 5 MILLIGRAM
     Route: 048
     Dates: start: 20110720, end: 20110907

REACTIONS (4)
  - BILE DUCT CANCER [None]
  - BILE DUCT STONE [None]
  - DIVERTICULUM [None]
  - REFUSAL OF TREATMENT BY PATIENT [None]
